FAERS Safety Report 5688128-X (Version None)
Quarter: 2008Q2

REPORT INFORMATION
  Report Type: 
  Country: None (occurrence: None)
  Receive Date: 20080327
  Receipt Date: 20080312
  Transmission Date: 20081010
  Serious: Yes (Other)
  Sender: FDA-Public Use
  Company Number: 2008007099

PATIENT
  Age: 44 Year
  Sex: Male

DRUGS (9)
  1. CETIRIZINE HYDROCHLORIDE [Suspect]
     Indication: URTICARIA
     Dosage: 10 MG,ORAL
     Route: 048
     Dates: start: 20071112, end: 20080208
  2. LAFUTIDINE [Suspect]
     Dosage: 20 MG,ORAL
     Route: 048
     Dates: start: 20070904, end: 20071209
  3. EPINASTINE HYDROCHLORIDE [Concomitant]
  4. TELMISARTAN [Concomitant]
  5. LORATADINE [Concomitant]
  6. BETAMETHASONE [Concomitant]
  7. BEPOTASTINE BESILATE [Concomitant]
  8. TEPRENONE [Concomitant]
  9. DOMPERIDONE [Concomitant]

REACTIONS (11)
  - ALANINE AMINOTRANSFERASE INCREASED [None]
  - ASPARTATE AMINOTRANSFERASE INCREASED [None]
  - BLOOD ALKALINE PHOSPHATASE INCREASED [None]
  - BLOOD LACTATE DEHYDROGENASE INCREASED [None]
  - DRUG INEFFECTIVE [None]
  - DYSPEPSIA [None]
  - FATIGUE [None]
  - GAMMA-GLUTAMYLTRANSFERASE INCREASED [None]
  - HEPATIC FUNCTION ABNORMAL [None]
  - LIVER DISORDER [None]
  - MUSCULOSKELETAL DISCOMFORT [None]
